FAERS Safety Report 18123946 (Version 1)
Quarter: 2020Q3

REPORT INFORMATION
  Report Type: Spontaneous
  Country: CN (occurrence: CN)
  Receive Date: 20200807
  Receipt Date: 20200807
  Transmission Date: 20201103
  Serious: Yes (Hospitalization)
  Sender: FDA-Public Use
  Company Number: CN-ASTRAZENECA-2020SE98743

PATIENT
  Age: 24055 Day
  Sex: Female
  Weight: 55 kg

DRUGS (3)
  1. SHENMAI INJECTION [Suspect]
     Active Substance: HERBALS
     Indication: CARDIAC FAILURE
     Route: 041
     Dates: start: 20200710, end: 20200719
  2. CRESTOR [Suspect]
     Active Substance: ROSUVASTATIN CALCIUM
     Indication: HYPERCHOLESTEROLAEMIA
     Route: 048
     Dates: start: 20200711, end: 20200722
  3. HYDROCHLOROTHIAZIDE. [Suspect]
     Active Substance: HYDROCHLOROTHIAZIDE
     Indication: CARDIAC FAILURE
     Route: 048
     Dates: start: 20200715, end: 20200720

REACTIONS (2)
  - Rash pruritic [Recovering/Resolving]
  - Henoch-Schonlein purpura [Recovering/Resolving]

NARRATIVE: CASE EVENT DATE: 20200719
